FAERS Safety Report 6355371-6 (Version None)
Quarter: 2009Q3

REPORT INFORMATION
  Report Type: 
  Country: None (occurrence: None)
  Receive Date: 20090914
  Receipt Date: 20090812
  Transmission Date: 20100115
  Serious: No
  Sender: FDA-Public Use
  Company Number: US-BAYER-200930301NA

PATIENT
  Age: 34 Year
  Sex: Female

DRUGS (1)
  1. ULTRAVIST 150 [Suspect]
     Indication: COMPUTERISED TOMOGRAM THORAX
     Dosage: TOTAL DAILY DOSE: 96 ML  UNIT DOSE: 500 ML
     Route: 042
     Dates: start: 20090811, end: 20090811

REACTIONS (1)
  - NAUSEA [None]
